FAERS Safety Report 10052099 (Version 3)
Quarter: 2014Q2

REPORT INFORMATION
  Report Type: Spontaneous
  Country: CA (occurrence: CA)
  Receive Date: 20140402
  Receipt Date: 20140407
  Transmission Date: 20141212
  Serious: Yes (Life-Threatening, Hospitalization)
  Sender: FDA-Public Use
  Company Number: CA-ROCHE-1374558

PATIENT
  Sex: Male

DRUGS (4)
  1. XOLAIR [Suspect]
     Indication: ASTHMA
     Route: 058
     Dates: start: 20130807
  2. XOLAIR [Suspect]
     Route: 058
     Dates: start: 20140218, end: 20140218
  3. SYMBICORT [Concomitant]
  4. NASONEX [Concomitant]

REACTIONS (2)
  - Pulmonary embolism [Unknown]
  - Respiratory tract infection [Unknown]
